FAERS Safety Report 18874163 (Version 2)
Quarter: 2022Q2

REPORT INFORMATION
  Report Type: Report from Study
  Country: EG (occurrence: EG)
  Receive Date: 20210210
  Receipt Date: 20220411
  Transmission Date: 20220721
  Serious: Yes (Other)
  Sender: FDA-Public Use
  Company Number: EG-NOVARTISPH-NVSC2021EG027971

PATIENT
  Age: 17 Year
  Sex: Female

DRUGS (4)
  1. GILENYA [Suspect]
     Active Substance: FINGOLIMOD HYDROCHLORIDE
     Indication: Multiple sclerosis
     Dosage: 0.5 MG, QD
     Route: 048
     Dates: start: 202011, end: 202101
  2. GILENYA [Suspect]
     Active Substance: FINGOLIMOD HYDROCHLORIDE
     Dosage: 0.5 MG, QOD
     Route: 048
  3. GILENYA [Suspect]
     Active Substance: FINGOLIMOD HYDROCHLORIDE
     Dosage: 0.5 MG, QD
     Route: 048
     Dates: start: 202101
  4. PANADOL [Concomitant]
     Active Substance: ACETAMINOPHEN
     Indication: Migraine
     Dosage: 1 DOSAGE FORM, PRN
     Route: 065

REACTIONS (11)
  - Hypotension [Recovered/Resolved]
  - Immunodeficiency [Recovering/Resolving]
  - Infection [Recovering/Resolving]
  - Pyrexia [Recovering/Resolving]
  - Off label use [Recovering/Resolving]
  - Endometriosis [Unknown]
  - Abdominal pain [Unknown]
  - Dermal cyst [Unknown]
  - Hypoaesthesia [Recovered/Resolved]
  - Product dose omission issue [Unknown]
  - Incorrect dose administered [Unknown]

NARRATIVE: CASE EVENT DATE: 20201101
